FAERS Safety Report 8566180-1 (Version None)
Quarter: 2012Q3

REPORT INFORMATION
  Report Type: 
  Country: None (occurrence: None)
  Receive Date: 20120803
  Receipt Date: 20111014
  Transmission Date: 20120928
  Serious: No
  Sender: FDA-Public Use
  Company Number: US-ABBOTT-11P-163-0863929-00

PATIENT
  Sex: Female
  Weight: 81.72 kg

DRUGS (3)
  1. MIRAPEX [Concomitant]
     Indication: PRODUCT USED FOR UNKNOWN INDICATION
  2. NIASPAN [Suspect]
     Indication: BLOOD TRIGLYCERIDES INCREASED
     Dosage: AT BEDTIME
     Dates: start: 20111013
  3. XANAX [Concomitant]
     Indication: ANXIETY

REACTIONS (1)
  - HEADACHE [None]
